FAERS Safety Report 8506129-0 (Version None)
Quarter: 2012Q3

REPORT INFORMATION
  Report Type: 
  Country: None (occurrence: None)
  Receive Date: 20120712
  Receipt Date: 20120712
  Transmission Date: 20120928
  Serious: Yes (Other)
  Sender: FDA-Public Use
  Company Number: CN-ROCHE-1082795

PATIENT
  Sex: Male

DRUGS (4)
  1. PEGASYS [Suspect]
  2. RIBAVIRIN (NON-ROCHE/NON-COMPARATOR) [Concomitant]
     Indication: HEPATITIS C
     Route: 048
     Dates: start: 20120705
  3. PEGASYS [Suspect]
     Dates: start: 20120705
  4. PEGASYS [Suspect]
     Indication: HEPATITIS C

REACTIONS (1)
  - HEPATITIS C [None]
